FAERS Safety Report 9894717 (Version 1)
Quarter: 2014Q1

REPORT INFORMATION
  Report Type: Spontaneous
  Country: JP (occurrence: JP)
  Receive Date: 20140213
  Receipt Date: 20140213
  Transmission Date: 20141002
  Serious: Yes (Hospitalization)
  Sender: FDA-Public Use
  Company Number: PHHY2014JP007504

PATIENT
  Sex: Male

DRUGS (9)
  1. CICLOSPORIN [Suspect]
     Indication: PROPHYLAXIS AGAINST GRAFT VERSUS HOST DISEASE
     Route: 042
  2. CICLOSPORIN [Suspect]
     Route: 048
  3. PREDNISOLONE [Suspect]
     Route: 048
  4. PREDNISOLONE [Suspect]
     Route: 048
  5. METHOTREXATE [Suspect]
     Indication: PROPHYLAXIS AGAINST GRAFT VERSUS HOST DISEASE
  6. FLUDARABINE [Concomitant]
     Dosage: 30 MG/M2, FOR FIVE DAYS
  7. CYCLOPHOSPHAMIDE [Concomitant]
     Dosage: 60 MG/M2, FOR TWO DAYS
  8. BUSULFAN [Concomitant]
     Dosage: 4 MG/KG, FOUR DAYS
  9. MELPHALAN [Concomitant]
     Dosage: 90 MG/M2, FOR TWO DAYS

REACTIONS (15)
  - Acute graft versus host disease in skin [Recovered/Resolved]
  - Anaemia [Recovering/Resolving]
  - Gastrointestinal disorder [Recovering/Resolving]
  - Granulocytopenia [Unknown]
  - Haematochezia [Recovering/Resolving]
  - Diarrhoea [Recovering/Resolving]
  - Mucosal inflammation [Recovered/Resolved]
  - Ulcer [Recovered/Resolved]
  - Hypoalbuminaemia [Recovering/Resolving]
  - Lymphocyte count increased [Unknown]
  - Haemorrhage [Recovered/Resolved]
  - Acute lymphocytic leukaemia [Unknown]
  - Infection [Recovering/Resolving]
  - Toxicity to various agents [Unknown]
  - Bone marrow transplant rejection [Unknown]
